FAERS Safety Report 7469971-3 (Version None)
Quarter: 2011Q2

REPORT INFORMATION
  Report Type: 
  Country: None (occurrence: None)
  Receive Date: 20110510
  Receipt Date: 20110505
  Transmission Date: 20111010
  Serious: Yes (Life-Threatening)
  Sender: FDA-Public Use
  Company Number: ZA-ROCHE-770352

PATIENT
  Sex: Male
  Weight: 82 kg

DRUGS (1)
  1. ACCUTANE [Suspect]
     Dosage: FREQUENCY: DAILY
     Route: 048
     Dates: start: 20100201, end: 20101001

REACTIONS (1)
  - TESTIS CANCER [None]
